FAERS Safety Report 4862048-2 (Version None)
Quarter: 2005Q4

REPORT INFORMATION
  Report Type: 
  Country: None (occurrence: None)
  Receive Date: 20051129
  Receipt Date: 20050913
  Transmission Date: 20060501
  Serious: Yes (Life-Threatening)
  Sender: FDA-Public Use
  Company Number: USA0506100952

PATIENT
  Age: 38 Year
  Sex: Female
  Weight: 60 kg

DRUGS (4)
  1. ZYPREXA [Suspect]
     Indication: SCHIZOAFFECTIVE DISORDER
     Dosage: 30 MG DAY
     Dates: start: 19980101, end: 20050511
  2. TRILEPTAL [Concomitant]
  3. RESTORIL [Concomitant]
  4. HEMOGLOBIN A1C [Concomitant]

REACTIONS (2)
  - DIABETES MELLITUS [None]
  - PRESCRIBED OVERDOSE [None]
